FAERS Safety Report 15082165 (Version 1)
Quarter: 2018Q2

REPORT INFORMATION
  Report Type: Spontaneous
  Country: US (occurrence: US)
  Receive Date: 20180628
  Receipt Date: 20180628
  Transmission Date: 20180711
  Serious: No
  Sender: FDA-Public Use
  Company Number: US-PFIZER INC-2018260530

PATIENT
  Age: 84 Year
  Sex: Female

DRUGS (2)
  1. NEURONTIN [Suspect]
     Active Substance: GABAPENTIN
     Dosage: 600 MG, UNK
     Route: 048
  2. NEURONTIN [Suspect]
     Active Substance: GABAPENTIN
     Dosage: 300 MG, UNK

REACTIONS (6)
  - Oedema peripheral [Unknown]
  - Sedation [Not Recovered/Not Resolved]
  - Somnolence [Unknown]
  - Condition aggravated [Unknown]
  - Blood pressure increased [Unknown]
  - Asthenia [Unknown]
